FAERS Safety Report 4750300-0 (Version None)
Quarter: 2005Q3

REPORT INFORMATION
  Report Type: 
  Country: None (occurrence: None)
  Receive Date: 20050818
  Receipt Date: 20050808
  Transmission Date: 20060218
  Serious: Yes (Death, Other)
  Sender: FDA-Public Use
  Company Number: 2005112875

PATIENT
  Age: 63 Year
  Sex: Male
  Weight: 113.3993 kg

DRUGS (4)
  1. LIPITOR [Suspect]
     Indication: BLOOD CHOLESTEROL
     Dates: end: 20000701
  2. INSULIN (INSULIN) [Concomitant]
  3. ALL OTHR THERAPEUTIC PRODUCTS (ALL OTHER THERAPEUTIC PRODUCTS) [Concomitant]
  4. LOPID [Concomitant]

REACTIONS (3)
  - DIALYSIS [None]
  - PANCREATIC CARCINOMA [None]
  - RENAL FAILURE [None]
